FAERS Safety Report 6094711-2 (Version None)
Quarter: 2009Q1

REPORT INFORMATION
  Report Type: 
  Country: None (occurrence: None)
  Receive Date: 20090226
  Receipt Date: 20090211
  Transmission Date: 20090719
  Serious: Yes (Death)
  Sender: FDA-Public Use
  Company Number: CA-GENENTECH-277480

PATIENT
  Age: 24 Year
  Sex: Male

DRUGS (1)
  1. RITUXAN [Suspect]
     Indication: EPSTEIN-BARR VIRUS INFECTION
     Dosage: 375 MG/M2, UNK
     Route: 042
     Dates: start: 20090125, end: 20090125

REACTIONS (1)
  - FUNGAL INFECTION [None]
